FAERS Safety Report 6762844-0 (Version None)
Quarter: 2010Q2

REPORT INFORMATION
  Report Type: 
  Country: None (occurrence: None)
  Receive Date: 20100608
  Receipt Date: 20100608
  Transmission Date: 20101027
  Serious: Yes (Hospitalization)
  Sender: FDA-Public Use
  Company Number: None

PATIENT
  Age: 59 Year
  Sex: Male
  Weight: 145 kg

DRUGS (1)
  1. VANCOMYCIN [Suspect]
     Indication: OSTEOMYELITIS
     Dosage: 2 GM BID IV
     Route: 042
     Dates: start: 20091211, end: 20091215

REACTIONS (7)
  - ANTIBIOTIC LEVEL BELOW THERAPEUTIC [None]
  - DECREASED APPETITE [None]
  - MALAISE [None]
  - MYALGIA [None]
  - NEPHRITIS [None]
  - RENAL FAILURE ACUTE [None]
  - RENAL TUBULAR NECROSIS [None]
